FAERS Safety Report 23646634 (Version 1)
Quarter: 2024Q1

REPORT INFORMATION
  Report Type: Spontaneous
  Country: IT (occurrence: IT)
  Receive Date: 20240319
  Receipt Date: 20240319
  Transmission Date: 20240409
  Serious: Yes (Hospitalization, Other)
  Sender: FDA-Public Use
  Company Number: IT-MINISAL02-973967

PATIENT
  Age: 1 Month
  Sex: Male

DRUGS (4)
  1. LEVETIRACETAM [Suspect]
     Active Substance: LEVETIRACETAM
     Indication: Seizure
     Dosage: 25 MILLIGRAM/KILOGRAM
     Route: 042
     Dates: start: 20220518
  2. PHENOBARBITAL SODIUM [Suspect]
     Active Substance: PHENOBARBITAL SODIUM
     Indication: Seizure
     Dosage: 20 MILLIGRAM/KILOGRAM
     Route: 042
     Dates: start: 20220518, end: 20220520
  3. MIDAZOLAM [Suspect]
     Active Substance: MIDAZOLAM
     Indication: Seizure
     Dosage: UNK
     Route: 042
     Dates: start: 20220518
  4. PHENYTOIN [Concomitant]
     Active Substance: PHENYTOIN
     Indication: Seizure
     Dosage: 18 MILLIGRAM/KILOGRAM
     Route: 042
     Dates: start: 20220530, end: 20220612

REACTIONS (2)
  - Seizure [Recovering/Resolving]
  - Drug ineffective [Not Recovered/Not Resolved]

NARRATIVE: CASE EVENT DATE: 20220518
